FAERS Safety Report 9466574 (Version 3)
Quarter: 2013Q3

REPORT INFORMATION
  Report Type: Report from Study
  Country: US (occurrence: US)
  Receive Date: 20130820
  Receipt Date: 20130823
  Transmission Date: 20140515
  Serious: Yes (Hospitalization)
  Sender: FDA-Public Use
  Company Number: US-ACTELION-A-NJ2013-83380

PATIENT
  Age: 63 Year
  Sex: Female

DRUGS (1)
  1. VENTAVIS [Suspect]
     Indication: PULMONARY ARTERIAL HYPERTENSION
     Dosage: UNK
     Route: 055
     Dates: end: 201307

REACTIONS (10)
  - Pain in jaw [Unknown]
  - Dyspnoea [Unknown]
  - Diarrhoea [Recovering/Resolving]
  - Nausea [Unknown]
  - Flushing [Unknown]
  - Headache [Unknown]
  - Chest discomfort [Unknown]
  - Incorrect drug administration duration [Unknown]
  - Malaise [Unknown]
  - Gait disturbance [Unknown]
